FAERS Safety Report 6382175-0 (Version None)
Quarter: 2009Q3

REPORT INFORMATION
  Report Type: 
  Country: None (occurrence: None)
  Receive Date: 20090930
  Receipt Date: 20090916
  Transmission Date: 20100115
  Serious: Yes (Hospitalization)
  Sender: FDA-Public Use
  Company Number: FR-PFIZER-2009188415

PATIENT
  Age: 87 Year

DRUGS (7)
  1. SALAZOPYRINE [Suspect]
     Indication: ARTHRITIS REACTIVE
     Dosage: 1.5 G, 1X/DAY
     Route: 048
     Dates: start: 20010101, end: 20090227
  2. KARDEGIC [Concomitant]
     Dosage: 75 MG, POWDER
     Route: 048
  3. SOTALEX [Concomitant]
     Dosage: 80 MG, SCORED TABLET
  4. HEMIGOXINE NATIVELLE [Concomitant]
  5. PERMIXON [Concomitant]
     Dosage: 160 MG CAPSULE
  6. SPASFON [Concomitant]
     Dosage: UNK, SCORED TABLET
  7. IPERTEN [Concomitant]

REACTIONS (3)
  - DYSPNOEA [None]
  - HAEMOPTYSIS [None]
  - INTERSTITIAL LUNG DISEASE [None]
